FAERS Safety Report 7630484-7 (Version None)
Quarter: 2011Q3

REPORT INFORMATION
  Report Type: 
  Country: None (occurrence: None)
  Receive Date: 20110722
  Receipt Date: 20110711
  Transmission Date: 20111222
  Serious: Yes (Hospitalization, Other)
  Sender: FDA-Public Use
  Company Number: US-ELI_LILLY_AND_COMPANY-US201010004510

PATIENT
  Sex: Female

DRUGS (3)
  1. COUMADIN [Concomitant]
     Dosage: UNK, UNKNOWN
     Route: 065
  2. FORTEO [Suspect]
     Dosage: 20 UG, QD
     Dates: start: 20110627
  3. FORTEO [Suspect]
     Indication: OSTEOPOROSIS
     Dosage: 20 UG, DAILY (1/D)
     Dates: end: 20110623

REACTIONS (17)
  - DYSPHAGIA [None]
  - HEART RATE INCREASED [None]
  - PROCEDURAL COMPLICATION [None]
  - FALL [None]
  - DYSPNOEA [None]
  - HEART RATE DECREASED [None]
  - ATRIAL FIBRILLATION [None]
  - DEHYDRATION [None]
  - ARTHRITIS [None]
  - HYPOTONIA [None]
  - EATING DISORDER [None]
  - CARDIAC FAILURE CONGESTIVE [None]
  - PNEUMOTHORAX [None]
  - DECREASED APPETITE [None]
  - WEIGHT DECREASED [None]
  - HOSPITALISATION [None]
  - ASTHENIA [None]
